FAERS Safety Report 6818761-0 (Version None)
Quarter: 2010Q3

REPORT INFORMATION
  Report Type: 
  Country: None (occurrence: None)
  Receive Date: 20100701
  Receipt Date: 20100419
  Transmission Date: 20110219
  Serious: Yes (Hospitalization, Other)
  Sender: FDA-Public Use
  Company Number: 2008-187739-NL

PATIENT
  Age: 21 Year
  Sex: Female
  Weight: 108.8633 kg

DRUGS (3)
  1. NUVARING [Suspect]
     Indication: CONTRACEPTION
     Dosage: VAG
     Route: 067
     Dates: start: 20030501, end: 20061001
  2. LORTAB [Concomitant]
  3. CEFZIL [Concomitant]

REACTIONS (11)
  - ANTIPHOSPHOLIPID ANTIBODIES [None]
  - DEEP VEIN THROMBOSIS [None]
  - HAEMOPTYSIS [None]
  - HEPATIC LESION [None]
  - MIGRAINE [None]
  - NASAL SEPTUM DEVIATION [None]
  - OBESITY [None]
  - OROPHARYNGEAL PAIN [None]
  - PULMONARY EMBOLISM [None]
  - TRICUSPID VALVE INCOMPETENCE [None]
  - UPPER RESPIRATORY TRACT INFECTION [None]
